FAERS Safety Report 8353497-9 (Version None)
Quarter: 2012Q2

REPORT INFORMATION
  Report Type: 
  Country: None (occurrence: None)
  Receive Date: 20120511
  Receipt Date: 20110425
  Transmission Date: 20120825
  Serious: No
  Sender: FDA-Public Use
  Company Number: US-GLAXOSMITHKLINE-A0924393A

PATIENT
  Age: 69 Year
  Sex: Female

DRUGS (4)
  1. CHEMOTHERAPY [Suspect]
  2. TYKERB [Suspect]
     Indication: BREAST CANCER METASTATIC
     Dosage: 5TAB PER DAY
     Route: 048
     Dates: start: 20110418, end: 20110422
  3. UNSPECIFIED MEDICATIONS [Concomitant]
  4. HERCEPTIN [Suspect]

REACTIONS (3)
  - DIARRHOEA [None]
  - PLATELET COUNT DECREASED [None]
  - NAUSEA [None]
